FAERS Safety Report 9789263 (Version 1)
Quarter: 2013Q4

REPORT INFORMATION
  Report Type: Spontaneous
  Country: GR (occurrence: GR)
  Receive Date: 20131230
  Receipt Date: 20131230
  Transmission Date: 20140711
  Serious: Yes (Other)
  Sender: FDA-Public Use
  Company Number: GR-WATSON-2013-23638

PATIENT
  Age: 13 Year
  Sex: Female

DRUGS (1)
  1. DESMOPRESSIN (UNKNOWN) [Suspect]
     Indication: HAEMORRHAGE PROPHYLAXIS
     Dosage: 1 DF, SINGLE; HIGH-DOSE
     Route: 065

REACTIONS (3)
  - Complications of transplanted kidney [Unknown]
  - Renal ischaemia [Unknown]
  - Renal tubular necrosis [Unknown]
